FAERS Safety Report 6028440-8 (Version None)
Quarter: 2009Q1

REPORT INFORMATION
  Report Type: 
  Country: None (occurrence: None)
  Receive Date: 20090106
  Receipt Date: 20081223
  Transmission Date: 20090719
  Serious: Yes (Disabling)
  Sender: FDA-Public Use
  Company Number: CH-ASTRAZENECA-2008PK02776

PATIENT
  Age: 46 Year
  Sex: Male
  Weight: 79 kg

DRUGS (8)
  1. BISOPROLOL FUMARATE [Suspect]
     Route: 048
     Dates: start: 20080504
  2. EPRIL [Suspect]
     Route: 048
     Dates: start: 20080504, end: 20080504
  3. HEPARIN [Suspect]
     Route: 041
     Dates: start: 20080504
  4. INSULIN ACTRAPID [Suspect]
     Route: 058
     Dates: start: 20080504
  5. SORTIS [Suspect]
     Route: 048
     Dates: start: 20080504
  6. RANITIDINE [Suspect]
     Route: 048
     Dates: start: 20080504
  7. LEXOTANIL [Suspect]
     Route: 048
     Dates: start: 20080504
  8. IMPORTAL [Suspect]
     Route: 048
     Dates: start: 20080504

REACTIONS (2)
  - ANGIOEDEMA [None]
  - RASH [None]
